FAERS Safety Report 18274826 (Version 2)
Quarter: 2020Q3

REPORT INFORMATION
  Report Type: Report from Study
  Country: DE (occurrence: DE)
  Receive Date: 20200916
  Receipt Date: 20200922
  Transmission Date: 20201103
  Serious: Yes (Hospitalization, Other)
  Sender: FDA-Public Use
  Company Number: DE-BRISTOL-MYERS SQUIBB COMPANY-BMS-2020-037475

PATIENT
  Age: 85 Year
  Sex: Male
  Weight: 75 kg

DRUGS (13)
  1. AMOXICLAV [Concomitant]
     Active Substance: AMOXICILLIN\CLAVULANATE POTASSIUM
     Indication: PRODUCT USED FOR UNKNOWN INDICATION
     Dosage: DOSE AS REQUIRED
     Route: 048
     Dates: start: 20191217, end: 20191223
  2. PANTOPRAZOLE [Concomitant]
     Active Substance: PANTOPRAZOLE
     Indication: PROPHYLAXIS
     Dosage: 20 MILLIGRAM
     Route: 048
  3. CLARITHROMYCIN. [Concomitant]
     Active Substance: CLARITHROMYCIN
     Indication: PROPHYLAXIS
     Dosage: 1000 MILLIGRAM
     Route: 042
     Dates: start: 20200511, end: 20200520
  4. VELMETIA [Concomitant]
     Active Substance: METFORMIN\SITAGLIPTIN
     Indication: PRODUCT USED FOR UNKNOWN INDICATION
     Dosage: DOSE AS REQUIRED
     Route: 048
  5. UNACID [AMPICILLIN SODIUM;SULBACTAM SODIUM] [Concomitant]
     Active Substance: AMPICILLIN SODIUM\SULBACTAM SODIUM
     Indication: PROPHYLAXIS
     Dosage: DOSE AS REQUIRED
     Route: 042
     Dates: start: 20200511, end: 20200519
  6. BEPANTHEN [DEXPANTHENOL] [Concomitant]
     Active Substance: DEXPANTHENOL
     Indication: PRODUCT USED FOR UNKNOWN INDICATION
     Dosage: UNK
     Route: 008
     Dates: start: 20191001, end: 20191005
  7. BISOHEXAL [Concomitant]
     Active Substance: BISOPROLOL FUMARATE
     Indication: PRODUCT USED FOR UNKNOWN INDICATION
     Dosage: DOSE AS REQUIRED
     Route: 048
  8. GEVILON [Concomitant]
     Active Substance: GEMFIBROZIL
     Indication: PRODUCT USED FOR UNKNOWN INDICATION
     Dosage: 300 MILLIGRAM
     Route: 048
  9. ASPIRIN. [Concomitant]
     Active Substance: ASPIRIN
     Indication: PROPHYLAXIS
     Dosage: 100 MILLIGRAM
     Route: 048
  10. BRONCHICUM [CAMPHOR;CINEOLE] [Concomitant]
     Indication: PRODUCT USED FOR UNKNOWN INDICATION
     Dosage: DOSE AS REQUIRED
     Route: 048
     Dates: start: 20200301
  11. CANDESARTAN. [Concomitant]
     Active Substance: CANDESARTAN
     Indication: PRODUCT USED FOR UNKNOWN INDICATION
     Dosage: 16 MILLIGRAM
     Route: 048
  12. TAMSULOSIN [Concomitant]
     Active Substance: TAMSULOSIN
     Indication: PRODUCT USED FOR UNKNOWN INDICATION
     Dosage: 0.4 MILLIGRAM
     Route: 048
     Dates: start: 20191210
  13. NIVOLUMAB [Suspect]
     Active Substance: NIVOLUMAB
     Indication: NEUROENDOCRINE CARCINOMA OF THE SKIN
     Dosage: 480 MILLIGRAM (INFUSION)
     Route: 065
     Dates: start: 20190903, end: 20200414

REACTIONS (3)
  - Pneumonia chlamydial [Recovered/Resolved]
  - Pneumonitis [Recovered/Resolved]
  - Pulmonary embolism [Recovered/Resolved]

NARRATIVE: CASE EVENT DATE: 20200511
